FAERS Safety Report 20595595 (Version 1)
Quarter: 2022Q1

REPORT INFORMATION
  Report Type: Spontaneous
  Country: US (occurrence: None)
  Receive Date: 20220314
  Receipt Date: 20220314
  Transmission Date: 20220423
  Serious: Yes (Disabling)
  Sender: FDA-Public Use
  Company Number: None

PATIENT
  Age: 38 Year
  Sex: Female
  Weight: 76.5 kg

DRUGS (2)
  1. SUBOXONE [Suspect]
     Active Substance: BUPRENORPHINE HYDROCHLORIDE\NALOXONE HYDROCHLORIDE
     Indication: Drug dependence
     Dosage: OTHER QUANTITY : 30 STRIPS;?FREQUENCY : TWICE A DAY;?
     Route: 060
     Dates: start: 20130314, end: 20220313
  2. TRAMADOL [Concomitant]
     Active Substance: TRAMADOL

REACTIONS (3)
  - Tooth disorder [None]
  - Dental caries [None]
  - Dental caries [None]

NARRATIVE: CASE EVENT DATE: 20180602
